FAERS Safety Report 7706471-7 (Version None)
Quarter: 2011Q3

REPORT INFORMATION
  Report Type: 
  Country: None (occurrence: None)
  Receive Date: 20110824
  Receipt Date: 20110816
  Transmission Date: 20111222
  Serious: Yes (Hospitalization)
  Sender: FDA-Public Use
  Company Number: DE-BRISTOL-MYERS SQUIBB COMPANY-15974595

PATIENT
  Age: 44 Year
  Sex: Female

DRUGS (1)
  1. ABATACEPT [Suspect]
     Indication: RHEUMATOID ARTHRITIS
     Dosage: RECEV ON T0:30NOV06,T1:23FEB07,T2:30MAY07,T3:12DEC07 AND T4:16AUG08,T5:9DEC08,T6:4JUN09,T8:5NOV10
     Dates: start: 20100401

REACTIONS (1)
  - BILIARY COLIC [None]
